FAERS Safety Report 11442958 (Version 2)
Quarter: 2015Q3

REPORT INFORMATION
  Report Type: Spontaneous
  Country: US (occurrence: US)
  Receive Date: 20150901
  Receipt Date: 20150921
  Transmission Date: 20151125
  Serious: No
  Sender: FDA-Public Use
  Company Number: ALCN2015US005444

PATIENT
  Age: 73 Year
  Sex: Male

DRUGS (1)
  1. DUREZOL [Suspect]
     Active Substance: DIFLUPREDNATE
     Indication: CORNEAL OEDEMA
     Dosage: 1 GTT, BID
     Route: 047
     Dates: start: 201505

REACTIONS (1)
  - Vision blurred [Recovering/Resolving]
